FAERS Safety Report 9149996 (Version 1)
Quarter: 2013Q1

REPORT INFORMATION
  Report Type: Spontaneous
  Country: US (occurrence: US)
  Receive Date: 20130308
  Receipt Date: 20130308
  Transmission Date: 20140127
  Serious: No
  Sender: FDA-Public Use
  Company Number: US-ENDO PHARMACEUTICALS INC.-OPCR20120756

PATIENT
  Sex: Male
  Weight: 65.83 kg

DRUGS (2)
  1. OPANA ER 20MG [Suspect]
     Indication: PAIN
     Route: 048
     Dates: start: 20120420, end: 201204
  2. OPANA [Suspect]
     Indication: PAIN
     Route: 048

REACTIONS (2)
  - Swollen tongue [Recovered/Resolved]
  - Pharyngeal oedema [Recovered/Resolved]
